FAERS Safety Report 6615569-6 (Version None)
Quarter: 2010Q1

REPORT INFORMATION
  Report Type: 
  Country: None (occurrence: None)
  Receive Date: 20100305
  Receipt Date: 20100224
  Transmission Date: 20100710
  Serious: Yes (Other)
  Sender: FDA-Public Use
  Company Number: US-BAYER-200940518NA

PATIENT
  Age: 54 Year
  Sex: Male

DRUGS (2)
  1. NEXAVAR [Suspect]
     Indication: RENAL CELL CARCINOMA
     Dosage: TOTAL DAILY DOSE: 800 MG  UNIT DOSE: 200 MG
     Route: 048
     Dates: start: 20091106
  2. FENTANYL [Concomitant]
     Route: 061

REACTIONS (17)
  - ABDOMINAL PAIN UPPER [None]
  - APPLICATION SITE BLEEDING [None]
  - CONSTIPATION [None]
  - DYSPHONIA [None]
  - EPISTAXIS [None]
  - ERYTHEMA [None]
  - GASTROINTESTINAL SOUNDS ABNORMAL [None]
  - GLOSSODYNIA [None]
  - INCREASED TENDENCY TO BRUISE [None]
  - ORAL CANDIDIASIS [None]
  - OROPHARYNGEAL PAIN [None]
  - PETECHIAE [None]
  - PURULENT DISCHARGE [None]
  - SINUSITIS [None]
  - STAPHYLOCOCCAL INFECTION [None]
  - SWOLLEN TONGUE [None]
  - TREMOR [None]
